FAERS Safety Report 22230193 (Version 1)
Quarter: 2023Q2

REPORT INFORMATION
  Report Type: Spontaneous
  Country: GB (occurrence: None)
  Receive Date: 20230419
  Receipt Date: 20230419
  Transmission Date: 20230722
  Serious: Yes (Life-Threatening, Hospitalization)
  Sender: FDA-Public Use
  Company Number: 2023A083264

PATIENT
  Age: 33 Year
  Sex: Female

DRUGS (4)
  1. QUETIAPINE [Suspect]
     Active Substance: QUETIAPINE
     Route: 048
  2. DULOXETINE [Suspect]
     Active Substance: DULOXETINE
  3. PREGABALIN [Suspect]
     Active Substance: PREGABALIN
  4. ALCOHOL [Suspect]
     Active Substance: ALCOHOL

REACTIONS (2)
  - Overdose [Unknown]
  - Hypotension [Unknown]
